FAERS Safety Report 22180571 (Version 1)
Quarter: 2023Q2

REPORT INFORMATION
  Report Type: Spontaneous
  Country: US (occurrence: US)
  Receive Date: 20230406
  Receipt Date: 20230406
  Transmission Date: 20230721
  Serious: Yes (Hospitalization, Other)
  Sender: FDA-Public Use
  Company Number: US-BAYER-2023A043721

PATIENT
  Age: 61 Year
  Sex: Male

DRUGS (10)
  1. ASPIRIN [Suspect]
     Active Substance: ASPIRIN
  2. AMILORIDE [Concomitant]
     Active Substance: AMILORIDE
  3. CLONIDINE [Concomitant]
     Active Substance: CLONIDINE
  4. METOPROLOL [Concomitant]
     Active Substance: METOPROLOL
  5. SPIRONOLACTONE [Concomitant]
     Active Substance: SPIRONOLACTONE
  6. POTASSIUM [Concomitant]
     Active Substance: POTASSIUM
  7. TADALAFIL [Concomitant]
     Active Substance: TADALAFIL
  8. FESOTERODINE [Concomitant]
     Active Substance: FESOTERODINE
  9. MAGNESIUM [Concomitant]
     Active Substance: MAGNESIUM
  10. VITAMINS [Concomitant]
     Active Substance: VITAMINS
     Dosage: UNK

REACTIONS (2)
  - Retinal haemorrhage [None]
  - Contraindicated product administered [None]
